FAERS Safety Report 21337993 (Version 2)
Quarter: 2022Q4

REPORT INFORMATION
  Report Type: Spontaneous
  Country: US (occurrence: US)
  Receive Date: 20220915
  Receipt Date: 20221111
  Transmission Date: 20230113
  Serious: No
  Sender: FDA-Public Use
  Company Number: US-MYLANLABS-2022M1092854

PATIENT
  Sex: Female
  Weight: 98.43 kg

DRUGS (1)
  1. EPINEPHRINE [Suspect]
     Active Substance: EPINEPHRINE
     Indication: Hypersensitivity
     Dosage: 0.3 MILLIGRAM
     Route: 065

REACTIONS (3)
  - Device failure [Unknown]
  - Product colour issue [Unknown]
  - Liquid product physical issue [Unknown]
